FAERS Safety Report 5297697-3 (Version None)
Quarter: 2007Q2

REPORT INFORMATION
  Report Type: 
  Country: None (occurrence: None)
  Receive Date: 20070409
  Receipt Date: 20070403
  Transmission Date: 20071010
  Serious: Yes (Hospitalization)
  Sender: FDA-Public Use
  Company Number: E3810-00791-SPO-AU

PATIENT
  Age: 49 Year
  Sex: Female

DRUGS (5)
  1. RABEPRAZOLE SODIUM [Suspect]
     Indication: DUODENITIS
     Dosage: 40 MG, ORAL
     Route: 048
     Dates: start: 20060907, end: 20061006
  2. RABEPRAZOLE SODIUM [Suspect]
     Indication: GASTRITIS
     Dosage: 40 MG, ORAL
     Route: 048
     Dates: start: 20060907, end: 20061006
  3. THIAMINE (THIAMINE) [Concomitant]
  4. MULTIVITAMIN [Concomitant]
  5. TAMAZEPAM (TEMAZEPAM) [Concomitant]

REACTIONS (2)
  - HEPATORENAL FAILURE [None]
  - RENAL IMPAIRMENT [None]
